FAERS Safety Report 25191303 (Version 1)
Quarter: 2025Q2

REPORT INFORMATION
  Report Type: Spontaneous
  Country: CN (occurrence: CN)
  Receive Date: 20250411
  Receipt Date: 20250411
  Transmission Date: 20250717
  Serious: Yes (Hospitalization)
  Sender: SANDOZ
  Company Number: CN-SANDOZ-SDZ2025CN022064

PATIENT
  Age: 74 Year
  Sex: Male

DRUGS (1)
  1. VORICONAZOLE [Suspect]
     Active Substance: VORICONAZOLE
     Indication: Pneumonia
     Dosage: 200 MG, BID
     Route: 048
     Dates: start: 20250311, end: 20250317

REACTIONS (4)
  - Mental disorder [Recovering/Resolving]
  - Discomfort [Recovering/Resolving]
  - Disorganised speech [Recovering/Resolving]
  - Vision blurred [Recovering/Resolving]

NARRATIVE: CASE EVENT DATE: 20250316
